FAERS Safety Report 6422244-X (Version None)
Quarter: 2009Q4

REPORT INFORMATION
  Report Type: 
  Country: None (occurrence: None)
  Receive Date: 20091030
  Receipt Date: 20091026
  Transmission Date: 20100525
  Serious: Yes (Other)
  Sender: FDA-Public Use
  Company Number: GB-TEVA-213349ISR

PATIENT
  Age: 34 Year
  Sex: Female

DRUGS (1)
  1. IBUPROFEN [Suspect]
     Indication: NECK PAIN

REACTIONS (6)
  - ALBUMINURIA [None]
  - HAEMATURIA [None]
  - MALAISE [None]
  - NEPHRITIS [None]
  - OEDEMA [None]
  - PAIN [None]
